FAERS Safety Report 10744756 (Version 1)
Quarter: 2015Q1

REPORT INFORMATION
  Report Type: Spontaneous
  Country: US (occurrence: None)
  Receive Date: 20150120
  Receipt Date: 20150120
  Transmission Date: 20150721
  Serious: No
  Sender: FDA-Public Use
  Company Number: AEGR000850

PATIENT
  Age: 56 Year
  Sex: Female
  Weight: 72.6 kg

DRUGS (13)
  1. OMEGA 369 [Suspect]
     Active Substance: FISH OIL
     Indication: PRODUCT USED FOR UNKNOWN INDICATION
  2. NOVOLOG [Concomitant]
     Active Substance: INSULIN ASPART
  3. TRADJENTA (LINAGLIPTIN) [Concomitant]
  4. LIVALO (PITAVASTATIN CALCIUM) [Concomitant]
  5. JUXTAPID [Suspect]
     Active Substance: LOMITAPIDE MESYLATE
     Indication: TYPE IIA HYPERLIPIDAEMIA
     Route: 048
     Dates: start: 20140226
  6. VICTOZA [Suspect]
     Active Substance: LIRAGLUTIDE
     Indication: PRODUCT USED FOR UNKNOWN INDICATION
  7. SPIRONOLACTONE. [Concomitant]
     Active Substance: SPIRONOLACTONE
  8. LANTUS [Concomitant]
     Active Substance: INSULIN GLARGINE
  9. PLAVIX (CLOPIDOGREL BISULFATE) [Concomitant]
  10. TYLENOL [Concomitant]
     Active Substance: ACETAMINOPHEN
  11. FUROSEMIDE. [Concomitant]
     Active Substance: FUROSEMIDE
  12. RANEXA (RANOLAZINE) [Concomitant]
  13. VITAMIN E [Suspect]
     Active Substance: .ALPHA.-TOCOPHEROL
     Indication: PRODUCT USED FOR UNKNOWN INDICATION

REACTIONS (5)
  - Laceration [None]
  - Abdominal discomfort [None]
  - Constipation [None]
  - Depressed mood [None]
  - Abdominal pain upper [None]

NARRATIVE: CASE EVENT DATE: 2014
